FAERS Safety Report 8105583-6 (Version None)
Quarter: 2012Q1

REPORT INFORMATION
  Report Type: 
  Country: None (occurrence: None)
  Receive Date: 20120201
  Receipt Date: 20120127
  Transmission Date: 20120608
  Serious: Yes (Hospitalization)
  Sender: FDA-Public Use
  Company Number: US-ROCHE-664479

PATIENT
  Sex: Female
  Weight: 69 kg

DRUGS (15)
  1. TEMAZEPAM [Concomitant]
     Dates: start: 20090701, end: 20090731
  2. LOPRESSOR [Concomitant]
  3. MOUTHWASH NOS [Concomitant]
     Dosage: MUCOSITIS MOUTHWASH, TDD: 3 TSP
     Dates: start: 20090526, end: 20090715
  4. RESTORIL [Concomitant]
  5. HERCEPTIN [Suspect]
     Indication: BREAST CANCER
     Dosage: DATE OF LAST DOSE PRIOR TO SAE: 22 SEP 2009, DOSE LEVEL: 6 MG/KG,DOSE FORM:VIALS. .
     Route: 042
  6. DOCETAXEL [Suspect]
     Indication: BREAST CANCER
     Dosage: DATE OF LAST DOSE PRRIOR TO SAE:22 SEP 2009,DOSE LEVEL: 75 MG/M2,DOSE FORM:VIALS.
     Route: 042
  7. LISINOPRIL [Concomitant]
     Dates: start: 20090521, end: 20090720
  8. MAG 2 [Concomitant]
     Dosage: DRUG: MAG-200
     Dates: start: 20090701, end: 20090731
  9. NORVASC [Concomitant]
  10. CARBOPLATIN [Suspect]
     Indication: BREAST CANCER
     Dosage: DATE OF LAST DOSE PRRIOR TO SAE: 22 SEP 2009, DOSE LEVEL: 6 AUC,DOSE FORM:VIALS.
     Route: 042
  11. AVASTIN [Suspect]
     Indication: BREAST CANCER
     Dosage: RECENT DOSE ON 1/JUL/2009
     Dates: start: 20090414, end: 20090731
  12. PROCHLORPERAZINE [Concomitant]
  13. NEXIUM [Concomitant]
  14. METHAMPHETAMINE [Concomitant]
  15. LOMOTIL [Concomitant]

REACTIONS (2)
  - PANCREATITIS ACUTE [None]
  - RENAL FAILURE [None]
